FAERS Safety Report 18390670 (Version 4)
Quarter: 2020Q4

REPORT INFORMATION
  Report Type: Report from Study
  Country: US (occurrence: US)
  Receive Date: 20201015
  Receipt Date: 20201216
  Transmission Date: 20210114
  Serious: Yes (Hospitalization, Other)
  Sender: FDA-Public Use
  Company Number: NVSC2020US275641

PATIENT
  Age: 52 Year
  Sex: Female

DRUGS (2)
  1. KESIMPTA [Suspect]
     Active Substance: OFATUMUMAB
     Indication: MULTIPLE SCLEROSIS
     Dosage: 20 MG, QMO(BENEATH THE SKIN)
     Route: 058
     Dates: start: 20200930
  2. KESIMPTA [Suspect]
     Active Substance: OFATUMUMAB
     Dosage: 20 MG, QMO
     Route: 058
     Dates: start: 20201203

REACTIONS (17)
  - Neck pain [Unknown]
  - Blindness unilateral [Not Recovered/Not Resolved]
  - Abdominal discomfort [Recovered/Resolved]
  - Eye pain [Unknown]
  - Pain in extremity [Unknown]
  - Muscular weakness [Unknown]
  - Multiple sclerosis relapse [Not Recovered/Not Resolved]
  - Vision blurred [Unknown]
  - Headache [Recovered/Resolved]
  - Head discomfort [Recovering/Resolving]
  - Fatigue [Recovering/Resolving]
  - Headache [Recovering/Resolving]
  - Insomnia [Recovering/Resolving]
  - Optic neuritis [Unknown]
  - Asthenia [Recovering/Resolving]
  - Speech disorder [Recovering/Resolving]
  - Spinal pain [Unknown]

NARRATIVE: CASE EVENT DATE: 20201028
